FAERS Safety Report 25245609 (Version 1)
Quarter: 2025Q2

REPORT INFORMATION
  Report Type: Spontaneous
  Country: US (occurrence: US)
  Receive Date: 20250428
  Receipt Date: 20250428
  Transmission Date: 20250716
  Serious: Yes (Hospitalization)
  Sender: MYLAN
  Company Number: US-MYLANLABS-2025M1034457

PATIENT
  Age: 51 Year
  Sex: Male

DRUGS (16)
  1. MESALAMINE [Suspect]
     Active Substance: MESALAMINE
     Indication: Colitis ulcerative
     Dosage: 800 MILLIGRAM, TID
  2. MESALAMINE [Suspect]
     Active Substance: MESALAMINE
     Dosage: 800 MILLIGRAM, TID
  3. MESALAMINE [Suspect]
     Active Substance: MESALAMINE
     Dosage: 800 MILLIGRAM, TID
     Route: 065
  4. MESALAMINE [Suspect]
     Active Substance: MESALAMINE
     Dosage: 800 MILLIGRAM, TID
     Route: 065
  5. MESALAMINE [Suspect]
     Active Substance: MESALAMINE
     Dosage: 1.6 GRAM, TID
  6. MESALAMINE [Suspect]
     Active Substance: MESALAMINE
     Dosage: 1.6 GRAM, TID
  7. MESALAMINE [Suspect]
     Active Substance: MESALAMINE
     Dosage: 1.6 GRAM, TID
     Route: 065
  8. MESALAMINE [Suspect]
     Active Substance: MESALAMINE
     Dosage: 1.6 GRAM, TID
     Route: 065
  9. HYDROCORTISONE [Suspect]
     Active Substance: HYDROCORTISONE
     Indication: Colitis ulcerative
     Dosage: 100 MILLIGRAM, Q8H
  10. HYDROCORTISONE [Suspect]
     Active Substance: HYDROCORTISONE
     Dosage: 100 MILLIGRAM, Q8H
     Route: 042
  11. HYDROCORTISONE [Suspect]
     Active Substance: HYDROCORTISONE
     Dosage: 100 MILLIGRAM, Q8H
     Route: 042
  12. HYDROCORTISONE [Suspect]
     Active Substance: HYDROCORTISONE
     Dosage: 100 MILLIGRAM, Q8H
  13. PREDNISONE [Concomitant]
     Active Substance: PREDNISONE
     Indication: Colitis ulcerative
     Dosage: 20 MILLIGRAM, BID
  14. PREDNISONE [Concomitant]
     Active Substance: PREDNISONE
     Dosage: 20 MILLIGRAM, BID
     Route: 065
  15. PREDNISONE [Concomitant]
     Active Substance: PREDNISONE
     Dosage: 20 MILLIGRAM, BID
     Route: 065
  16. PREDNISONE [Concomitant]
     Active Substance: PREDNISONE
     Dosage: 20 MILLIGRAM, BID

REACTIONS (5)
  - Myocarditis [Recovering/Resolving]
  - Cardiomyopathy [Recovering/Resolving]
  - Diastolic dysfunction [Recovering/Resolving]
  - Acute myocardial infarction [Recovering/Resolving]
  - Drug ineffective [Unknown]
